FAERS Safety Report 5324880-0 (Version None)
Quarter: 2007Q2

REPORT INFORMATION
  Report Type: 
  Country: None (occurrence: None)
  Receive Date: 20070515
  Receipt Date: 20070509
  Transmission Date: 20071010
  Serious: Yes (Hospitalization)
  Sender: FDA-Public Use
  Company Number: FI-BAYER-200712605GDS

PATIENT
  Age: 67 Year
  Sex: Female

DRUGS (2)
  1. AVELOX [Suspect]
     Indication: PNEUMONIA
     Dosage: TOTAL DAILY DOSE: 400 MG  UNIT DOSE: 400 MG
     Route: 048
     Dates: start: 20070416, end: 20070423
  2. EFFEXOR [Concomitant]
     Indication: DEPRESSION
     Dosage: TOTAL DAILY DOSE: 150 MG
     Route: 048

REACTIONS (2)
  - CONFUSIONAL STATE [None]
  - MANIA [None]
